FAERS Safety Report 5328793-X (Version None)
Quarter: 2007Q2

REPORT INFORMATION
  Report Type: 
  Country: None (occurrence: None)
  Receive Date: 20070518
  Receipt Date: 20070508
  Transmission Date: 20071010
  Serious: Yes (Hospitalization)
  Sender: FDA-Public Use
  Company Number: GB-ROCHE-496499

PATIENT
  Age: 74 Year
  Sex: Male
  Weight: 78.5 kg

DRUGS (6)
  1. CAPECITABINE [Suspect]
     Indication: COLON CANCER
     Dosage: THE PATIENT BEGAN THERAPY AT A REDUCED DOSE, REPORTED AS 2000 (UNITS NOT PROVIDED) DUE TO HIS AGE A+
     Route: 048
     Dates: start: 20070427
  2. BEVACIZUMAB [Suspect]
     Indication: COLON CANCER
     Dosage: DOSE REPORTED AS 600 (UNITS NOT PROVIDED)  7.5MG/KG AS PER PROTOCOL.
     Route: 042
     Dates: start: 20070427
  3. ASPIRIN [Concomitant]
     Indication: THROMBOSIS PROPHYLAXIS
     Route: 048
  4. BECLOMETHASONE DIPROPIONATE [Concomitant]
     Indication: ASTHMA
     Dosage: REPORTED AS ^BECLOMETHASONE INHALER^
     Route: 055
  5. 1 CONCOMITANT DRUG [Concomitant]
     Indication: ASTHMA
     Dosage: REPORTED AS ^SALMETROL INHALER^.
     Route: 055
  6. RAMIPRIL [Concomitant]
     Indication: HYPERTENSION
     Route: 048

REACTIONS (1)
  - ARTERIOSPASM CORONARY [None]
